FAERS Safety Report 10015741 (Version 1)
Quarter: 2014Q1

REPORT INFORMATION
  Report Type: Spontaneous
  Country: JP (occurrence: JP)
  Receive Date: 20140317
  Receipt Date: 20140317
  Transmission Date: 20141002
  Serious: Yes (Other)
  Sender: FDA-Public Use
  Company Number: JP-B.I. PHARMACEUTICALS,INC./RIDGEFIELD-2014-BI-11096NB

PATIENT
  Age: 63 Year
  Sex: Male

DRUGS (6)
  1. TRAZENTA [Suspect]
     Indication: TYPE 2 DIABETES MELLITUS
     Dosage: 5 MG
     Route: 048
     Dates: start: 20140217, end: 20140227
  2. BASEN OD [Concomitant]
     Indication: TYPE 2 DIABETES MELLITUS
     Route: 048
  3. STARSIS [Concomitant]
     Indication: TYPE 2 DIABETES MELLITUS
     Route: 048
  4. SPLENDIL [Concomitant]
     Indication: HYPERTENSION
     Route: 048
  5. DIOVAN [Concomitant]
     Indication: HYPERTENSION
     Route: 048
  6. ACTOS [Concomitant]
     Indication: TYPE 2 DIABETES MELLITUS
     Route: 048

REACTIONS (1)
  - Drug eruption [Recovered/Resolved]
